FAERS Safety Report 14702052 (Version 1)
Quarter: 2018Q1

REPORT INFORMATION
  Report Type: Spontaneous
  Country: IN (occurrence: IN)
  Receive Date: 20180331
  Receipt Date: 20180331
  Transmission Date: 20180509
  Serious: Yes (Other)
  Sender: FDA-Public Use
  Company Number: IN-MYLANLABS-2018M1019624

PATIENT
  Age: 49 Year
  Sex: Male

DRUGS (14)
  1. PREDNISOLONE. [Suspect]
     Active Substance: PREDNISOLONE
     Indication: TYPE 2 LEPRA REACTION
     Dosage: 40 MG, UNK
     Route: 048
  2. PREDNISOLONE. [Suspect]
     Active Substance: PREDNISOLONE
     Indication: LEPROMATOUS LEPROSY
     Dosage: 40-80MG, QD
  3. RIFAMPICIN [Suspect]
     Active Substance: RIFAMPIN
     Indication: TYPE 2 LEPRA REACTION
     Dosage: 600 MG, MONTHLY
  4. AZATHIOPRINE. [Suspect]
     Active Substance: AZATHIOPRINE
     Indication: TYPE 2 LEPRA REACTION
     Dosage: 150 MG, QD
  5. THALIDOMIDE [Suspect]
     Active Substance: THALIDOMIDE
     Indication: TYPE 2 LEPRA REACTION
     Dosage: 300 MG, QD, INITIALLY
     Route: 065
  6. OFLOXACIN. [Suspect]
     Active Substance: OFLOXACIN
     Indication: TYPE 2 LEPRA REACTION
     Dosage: 400 MG, QD
  7. CLOFAZIMINE [Suspect]
     Active Substance: CLOFAZIMINE
     Dosage: 300 MG, QD
  8. MINOCYCLINE [Suspect]
     Active Substance: MINOCYCLINE\MINOCYCLINE HYDROCHLORIDE
     Indication: TYPE 2 LEPRA REACTION
     Dosage: 100 MG, QD
  9. CLOFAZIMINE [Suspect]
     Active Substance: CLOFAZIMINE
     Indication: LEPROMATOUS LEPROSY
     Dosage: 300 MG, MONTHLY
  10. DAPSONE. [Suspect]
     Active Substance: DAPSONE
     Indication: LEPROMATOUS LEPROSY
     Dosage: 100 MG, UNK
  11. CLARITHROMYCIN. [Suspect]
     Active Substance: CLARITHROMYCIN
     Indication: TYPE 2 LEPRA REACTION
     Dosage: 1 G, QD
  12. PENTOXIFYLLINE. [Suspect]
     Active Substance: PENTOXIFYLLINE
     Indication: TYPE 2 LEPRA REACTION
     Dosage: 400 MG, TID
  13. CLOFAZIMINE [Suspect]
     Active Substance: CLOFAZIMINE
     Dosage: 50 MG, QD
  14. AZATHIOPRINE. [Suspect]
     Active Substance: AZATHIOPRINE
     Dosage: 300 MG, UNK

REACTIONS (6)
  - Oral candidiasis [Unknown]
  - Diabetes mellitus [Unknown]
  - Hypertriglyceridaemia [Unknown]
  - Diarrhoea [Unknown]
  - Abdominal pain [Unknown]
  - Neuropathy peripheral [Unknown]
